FAERS Safety Report 13106556 (Version 2)
Quarter: 2017Q3

REPORT INFORMATION
  Report Type: Report from Study
  Country: US (occurrence: US)
  Receive Date: 20170111
  Receipt Date: 20170810
  Transmission Date: 20171127
  Serious: Yes (Hospitalization)
  Sender: FDA-Public Use
  Company Number: US-ACTELION-A-NJ2017-148052

PATIENT
  Age: 40 Year
  Sex: Female
  Weight: 81.63 kg

DRUGS (5)
  1. UPTRAVI [Suspect]
     Active Substance: SELEXIPAG
     Indication: PULMONARY ARTERIAL HYPERTENSION
     Dosage: 1200 MCG, BID
     Route: 048
  2. WARFARIN [Concomitant]
     Active Substance: WARFARIN
  3. UPTRAVI [Suspect]
     Active Substance: SELEXIPAG
     Dosage: UNK
     Route: 048
     Dates: start: 20160202
  4. ADEMPAS [Concomitant]
     Active Substance: RIOCIGUAT
  5. LETAIRIS [Concomitant]
     Active Substance: AMBRISENTAN

REACTIONS (14)
  - Dyspnoea exertional [Unknown]
  - Diaphragmatic disorder [Unknown]
  - Bladder prolapse [Unknown]
  - Fall [Unknown]
  - Heart rate decreased [Unknown]
  - Abdominal distension [Unknown]
  - Abnormal faeces [Unknown]
  - Intra-abdominal haemorrhage [Unknown]
  - Abdominal pain [Unknown]
  - Head injury [Unknown]
  - Anal prolapse [Unknown]
  - Blood pressure abnormal [Unknown]
  - Heart rate abnormal [Unknown]
  - Loss of consciousness [Unknown]

NARRATIVE: CASE EVENT DATE: 20170724
